FAERS Safety Report 9373180 (Version 4)
Quarter: 2013Q3

REPORT INFORMATION
  Report Type: Spontaneous
  Country: US (occurrence: US)
  Receive Date: 20130627
  Receipt Date: 20130730
  Transmission Date: 20140515
  Serious: No
  Sender: FDA-Public Use
  Company Number: US-VERTEX PHARMACEUTICALS INC-2013-007480

PATIENT
  Age: 45 Year
  Sex: Female
  Weight: 70 kg

DRUGS (7)
  1. INCIVEK [Suspect]
     Indication: HEPATITIS C
     Dosage: 750 MG, TID
     Route: 048
     Dates: start: 20130621
  2. RIBAVIRIN [Suspect]
     Indication: HEPATITIS C
     Dosage: 600 MG AM, 400 MGPM
     Dates: start: 20130621
  3. PEGASYS [Suspect]
     Indication: HEPATITIS C
     Dosage: 180 ?G, QW
     Route: 058
     Dates: start: 20130621
  4. SYNTHROID [Concomitant]
     Indication: HYPOTHYROIDISM
     Route: 048
  5. LISINOPRIL [Concomitant]
     Indication: HYPERTENSION
     Route: 048
  6. AMBIEN [Concomitant]
     Indication: SLEEP DISORDER
     Dosage: UNK, PRN HS
     Route: 048
  7. PROZAC [Concomitant]

REACTIONS (4)
  - Fatigue [Not Recovered/Not Resolved]
  - Rash erythematous [Not Recovered/Not Resolved]
  - Nausea [Recovered/Resolved]
  - Pruritus [Unknown]
